FAERS Safety Report 7106734-2 (Version None)
Quarter: 2010Q4

REPORT INFORMATION
  Report Type: 
  Country: None (occurrence: None)
  Receive Date: 20101116
  Receipt Date: 20100820
  Transmission Date: 20110411
  Serious: No
  Sender: FDA-Public Use
  Company Number: US-ABBOTT-10P-163-0665307-00

PATIENT
  Sex: Female

DRUGS (2)
  1. SIMCOR [Suspect]
     Indication: HYPERLIPIDAEMIA
     Dosage: 750/20MG AT BEDTIME
     Dates: start: 20080101
  2. SIMCOR [Suspect]
     Dates: start: 20100819

REACTIONS (2)
  - FLUSHING [None]
  - PARAESTHESIA [None]
